FAERS Safety Report 9680384 (Version 1)
Quarter: 2013Q4

REPORT INFORMATION
  Report Type: Spontaneous
  Country: IT (occurrence: IT)
  Receive Date: 20131111
  Receipt Date: 20131111
  Transmission Date: 20140711
  Serious: Yes (Other)
  Sender: FDA-Public Use
  Company Number: PHHY2013IT125032

PATIENT
  Sex: Female

DRUGS (4)
  1. NILOTINIB [Suspect]
     Indication: CHRONIC MYELOID LEUKAEMIA
     Dosage: 400 MG, BID
     Route: 048
     Dates: start: 20101230
  2. NILOTINIB [Suspect]
     Dosage: UNK
     Dates: start: 20131009
  3. CLEXANE [Concomitant]
     Dosage: UNK
     Dates: start: 20131028
  4. DUOPLAVIN [Concomitant]
     Dosage: UNK
     Dates: start: 20131028

REACTIONS (5)
  - Renal artery occlusion [Unknown]
  - Transaminases increased [Recovering/Resolving]
  - Blood alkaline phosphatase increased [Not Recovered/Not Resolved]
  - Blood creatinine increased [Unknown]
  - Blood pressure increased [Unknown]
